FAERS Safety Report 4387797-4 (Version None)
Quarter: 2004Q2

REPORT INFORMATION
  Report Type: 
  Country: None (occurrence: None)
  Receive Date: 20040630
  Receipt Date: 20040527
  Transmission Date: 20050107
  Serious: Yes (Hospitalization, Other)
  Sender: FDA-Public Use
  Company Number: GB-GLAXOSMITHKLINE-B0334223A

PATIENT
  Age: 36 Year
  Sex: Female

DRUGS (1)
  1. ZYBAN [Suspect]

REACTIONS (10)
  - ABASIA [None]
  - CONFUSIONAL STATE [None]
  - CONVULSION [None]
  - DEPRESSION [None]
  - DISABILITY [None]
  - EPILEPSY [None]
  - IMPAIRED DRIVING ABILITY [None]
  - IMPAIRED WORK ABILITY [None]
  - ORAL INFECTION [None]
  - SUICIDAL IDEATION [None]
